FAERS Safety Report 6634921-6 (Version None)
Quarter: 2010Q1

REPORT INFORMATION
  Report Type: 
  Country: None (occurrence: None)
  Receive Date: 20100315
  Receipt Date: 20100311
  Transmission Date: 20100710
  Serious: Yes (Death, Life-Threatening, Hospitalization, Other)
  Sender: FDA-Public Use
  Company Number: JP-ROCHE-588086

PATIENT
  Sex: Female
  Weight: 4 kg

DRUGS (57)
  1. TOCILIZUMAB [Suspect]
     Indication: JUVENILE ARTHRITIS
     Dosage: DOSE DECREASED.
     Route: 041
     Dates: start: 20080902, end: 20080919
  2. TOCILIZUMAB [Suspect]
     Dosage: DOSE INCREASED
     Route: 041
     Dates: start: 20081015, end: 20081015
  3. TOCILIZUMAB [Suspect]
     Dosage: DOSE INCREASED
     Route: 041
     Dates: start: 20081015, end: 20081015
  4. TOCILIZUMAB [Suspect]
     Dosage: DOSE DECREASED
     Route: 041
     Dates: start: 20081022, end: 20081119
  5. TOCILIZUMAB [Suspect]
     Dosage: DOSE INCREASED..
     Route: 041
     Dates: start: 20081126, end: 20081126
  6. TOCILIZUMAB [Suspect]
     Dosage: DOSE DECREASED.
     Route: 041
     Dates: start: 20081210, end: 20081217
  7. TOCILIZUMAB [Suspect]
     Route: 041
     Dates: start: 20081225, end: 20090107
  8. PREDONINE [Suspect]
     Indication: JUVENILE ARTHRITIS
     Dosage: ROUTE: INTRAVENOUS (NOT OTHERWISE SPECIFIED)
     Route: 042
     Dates: start: 20080709, end: 20080722
  9. PREDONINE [Suspect]
     Route: 042
     Dates: start: 20080723, end: 20080729
  10. PREDONINE [Suspect]
     Route: 042
     Dates: start: 20080810, end: 20080820
  11. PREDONINE [Suspect]
     Route: 042
     Dates: start: 20080923, end: 20080923
  12. PREDONINE [Suspect]
     Route: 042
     Dates: start: 20081022, end: 20081022
  13. PREDONINE [Suspect]
     Route: 042
     Dates: start: 20081029, end: 20081029
  14. PREDONINE [Suspect]
     Route: 042
     Dates: start: 20081105, end: 20081105
  15. PREDONINE [Suspect]
     Route: 042
     Dates: start: 20081112, end: 20081112
  16. PREDONINE [Suspect]
     Route: 042
     Dates: start: 20081119, end: 20081119
  17. PREDONINE [Suspect]
     Route: 042
     Dates: start: 20081126, end: 20081126
  18. PREDONINE [Suspect]
     Route: 042
     Dates: start: 20081217, end: 20081217
  19. PREDONINE [Suspect]
     Route: 042
     Dates: start: 20081219, end: 20081219
  20. PREDONINE [Suspect]
     Route: 042
     Dates: start: 20081220, end: 20081225
  21. PREDONINE [Suspect]
     Dosage: INTRAVENOUS (NOT OTHERWISE SPECIFIED)
     Route: 042
     Dates: start: 20090127, end: 20090226
  22. PREDNISOLONE [Suspect]
     Indication: JUVENILE ARTHRITIS
     Route: 048
     Dates: start: 20080730, end: 20080804
  23. PREDNISOLONE [Suspect]
     Route: 048
     Dates: start: 20080805, end: 20080809
  24. PREDNISOLONE [Suspect]
     Route: 048
     Dates: start: 20080821, end: 20080919
  25. PREDNISOLONE [Suspect]
     Route: 048
     Dates: start: 20081020, end: 20081021
  26. PREDNISOLONE [Suspect]
     Route: 048
     Dates: start: 20081023, end: 20081028
  27. PREDNISOLONE [Suspect]
     Route: 048
     Dates: start: 20081030, end: 20081103
  28. PREDNISOLONE [Suspect]
     Route: 048
     Dates: start: 20081104, end: 20081104
  29. PREDNISOLONE [Suspect]
     Route: 048
     Dates: start: 20081106, end: 20081111
  30. PREDNISOLONE [Suspect]
     Route: 048
     Dates: start: 20081113, end: 20081116
  31. PREDNISOLONE [Suspect]
     Route: 048
     Dates: start: 20081117, end: 20081118
  32. PREDNISOLONE [Suspect]
     Route: 048
     Dates: start: 20081120, end: 20081125
  33. PREDNISOLONE [Suspect]
     Route: 048
     Dates: start: 20081127, end: 20081130
  34. PREDNISOLONE [Suspect]
     Route: 048
     Dates: start: 20081201, end: 20081216
  35. PREDNISOLONE [Suspect]
     Route: 048
     Dates: start: 20081218, end: 20081218
  36. PREDNISOLONE [Suspect]
     Route: 048
     Dates: start: 20081226, end: 20090112
  37. PREDNISOLONE [Suspect]
     Route: 048
     Dates: start: 20090113, end: 20090126
  38. PREDNISOLONE [Suspect]
     Route: 048
     Dates: start: 20090227, end: 20090101
  39. SOLU-CORTEF [Suspect]
     Indication: PROPHYLAXIS
     Dosage: ROUTE: INTRAVENOUS (NOS)
     Route: 042
     Dates: start: 20080919, end: 20080919
  40. SOLU-CORTEF [Suspect]
     Route: 042
     Dates: start: 20080920, end: 20080922
  41. ANTIBIOTIC NOS [Suspect]
     Indication: DRUG USE FOR UNKNOWN INDICATION
     Dosage: DRUG REPORTED AS: OTHER ANTIBIOTIC PREPARATIONS (INCLUDING MIXED ANTIBIOTICS)
     Route: 065
  42. UNASYN [Suspect]
     Indication: BRONCHITIS
     Route: 042
     Dates: start: 20080913, end: 20080918
  43. UNASYN [Suspect]
     Route: 042
     Dates: start: 20080919, end: 20080919
  44. UNASYN [Suspect]
     Route: 042
     Dates: start: 20080920, end: 20080922
  45. FERRIC PYROPHOSPHATE [Concomitant]
     Dosage: DRUG: INCREMIN
     Route: 048
     Dates: start: 20080709, end: 20090101
  46. LAC-B [Concomitant]
     Route: 048
     Dates: start: 20080709, end: 20081023
  47. LAC-B [Concomitant]
     Route: 048
     Dates: start: 20081024
  48. ALFAROL [Concomitant]
     Dosage: FORM: ORAL FORMULATION (NOS)
     Route: 048
     Dates: start: 20080709, end: 20081016
  49. ALFAROL [Concomitant]
     Route: 048
     Dates: start: 20081017, end: 20090101
  50. ALLOID G [Concomitant]
     Route: 048
     Dates: start: 20080709, end: 20090101
  51. GASTER [Concomitant]
     Route: 048
     Dates: start: 20080725
  52. MUCODYNE [Concomitant]
     Route: 048
     Dates: start: 20080908
  53. MUCOSOLVAN [Concomitant]
     Route: 048
     Dates: start: 20080908
  54. ANGINAL [Concomitant]
     Dosage: FORM: ORAL FORMULATION (NOT OTHERWISE SPECIFIED)
     Route: 048
     Dates: start: 20081028
  55. ANGINAL [Concomitant]
     Route: 048
     Dates: start: 20081111
  56. BAKTAR [Concomitant]
     Dosage: FORM: ORAL FORMULATION (NOS).
     Route: 048
     Dates: start: 20080919, end: 20080922
  57. HOKUNALIN [Concomitant]
     Dosage: FORM: TAPE
     Route: 062
     Dates: start: 20080919

REACTIONS (14)
  - ACUTE RESPIRATORY DISTRESS SYNDROME [None]
  - ANAEMIA [None]
  - BLOOD PRESSURE DECREASED [None]
  - BRONCHITIS [None]
  - DERMATITIS ALLERGIC [None]
  - FLUSHING [None]
  - GASTROENTERITIS [None]
  - HYPERCOAGULATION [None]
  - HYPERTENSION [None]
  - INTERSTITIAL LUNG DISEASE [None]
  - PNEUMONIA [None]
  - PROTEIN-LOSING GASTROENTEROPATHY [None]
  - RENAL FAILURE ACUTE [None]
  - VOMITING [None]
